FAERS Safety Report 11514027 (Version 6)
Quarter: 2023Q4

REPORT INFORMATION
  Report Type: Report from Study
  Country: US (occurrence: US)
  Receive Date: 20150916
  Receipt Date: 20231027
  Transmission Date: 20240110
  Serious: Yes (Other)
  Sender: FDA-Public Use
  Company Number: US-AMGEN-USASP2015094722

PATIENT
  Age: 57 Year
  Sex: Female

DRUGS (4)
  1. ENBREL [Suspect]
     Active Substance: ETANERCEPT
     Indication: Rheumatoid arthritis
     Dosage: 50 MILLIGRAM, QWK
     Route: 065
     Dates: start: 2008
  2. ENBREL [Suspect]
     Active Substance: ETANERCEPT
     Dosage: 50 MILLIGRAM, QWK
     Route: 065
     Dates: end: 202308
  3. VIBRAMYCIN [Concomitant]
     Active Substance: DOXYCYCLINE
     Route: 065
  4. LAMICTAL [Concomitant]
     Active Substance: LAMOTRIGINE
     Indication: Seizure
     Dosage: UNK
     Dates: start: 2002

REACTIONS (15)
  - Seizure [Not Recovered/Not Resolved]
  - Large granular lymphocytosis [Not Recovered/Not Resolved]
  - Therapeutic product effect variable [Unknown]
  - Therapeutic response unexpected [Unknown]
  - Respiratory tract infection [Unknown]
  - Injection site bruising [Unknown]
  - Injection site pain [Unknown]
  - Injection site pruritus [Unknown]
  - Injection site swelling [Not Recovered/Not Resolved]
  - Injection site erythema [Unknown]
  - Sinusitis [Unknown]
  - Melanocytic naevus [Unknown]
  - Spleen disorder [Unknown]
  - Varicose vein [Unknown]
  - Muscle spasms [Not Recovered/Not Resolved]

NARRATIVE: CASE EVENT DATE: 20130101
